FAERS Safety Report 6094270-4 (Version None)
Quarter: 2009Q1

REPORT INFORMATION
  Report Type: 
  Country: None (occurrence: None)
  Receive Date: 20090225
  Receipt Date: 20090225
  Transmission Date: 20090719
  Serious: No
  Sender: FDA-Public Use
  Company Number: None

PATIENT
  Sex: Male
  Weight: 105.6881 kg

DRUGS (10)
  1. CARBIDOPA/LEVODOPA 25/100 ACTA [Suspect]
     Indication: PARKINSON'S DISEASE
     Dosage: 1.5 TABLETS 5X/DAY PO LAST 3 MONTHS
     Route: 048
  2. COMTAN [Concomitant]
  3. REQUIP [Concomitant]
  4. AMANTADINE HCL [Concomitant]
  5. SIMVASTATIN [Concomitant]
  6. TERAZOSIN HCL [Concomitant]
  7. HYDROCHLOROTHIAZIDE [Concomitant]
  8. NIACIN [Concomitant]
  9. ASPIRIN [Concomitant]
  10. FLOMAX [Concomitant]

REACTIONS (2)
  - DRUG EFFECT DECREASED [None]
  - PRODUCT QUALITY ISSUE [None]
